FAERS Safety Report 17609043 (Version 1)
Quarter: 2020Q2

REPORT INFORMATION
  Report Type: Spontaneous
  Country: GB (occurrence: GB)
  Receive Date: 20200401
  Receipt Date: 20200401
  Transmission Date: 20200713
  Serious: Yes (Other)
  Sender: FDA-Public Use
  Company Number: GB-AUROBINDO-AUR-APL-2020-016064

PATIENT
  Age: 26 Year
  Sex: Female
  Weight: 76.2 kg

DRUGS (2)
  1. CITALOPRAM [Suspect]
     Active Substance: CITALOPRAM HYDROBROMIDE
     Indication: POST-TRAUMATIC STRESS DISORDER
     Dosage: 10 MILLIGRAM, ONCE A DAY
     Route: 048
     Dates: start: 20200110
  2. SALBUTAMOL [Concomitant]
     Active Substance: ALBUTEROL
     Indication: PRODUCT USED FOR UNKNOWN INDICATION
     Dosage: UNK
     Route: 065

REACTIONS (3)
  - Dyskinesia [Not Recovered/Not Resolved]
  - Bruxism [Not Recovered/Not Resolved]
  - Tardive dyskinesia [Not Recovered/Not Resolved]

NARRATIVE: CASE EVENT DATE: 20200117
